FAERS Safety Report 7169751-2 (Version None)
Quarter: 2010Q4

REPORT INFORMATION
  Report Type: 
  Country: None (occurrence: None)
  Receive Date: 20101217
  Receipt Date: 20100125
  Transmission Date: 20110411
  Serious: No
  Sender: FDA-Public Use
  Company Number: A0836829A

PATIENT
  Age: 62 Year
  Sex: Female
  Weight: 68.2 kg

DRUGS (2)
  1. SORIATANE [Suspect]
     Dosage: 25MG PER DAY
     Route: 048
     Dates: start: 20090101, end: 20091210
  2. CORDRAN TAPE [Concomitant]
     Indication: PSORIASIS
     Route: 061
     Dates: start: 20080101

REACTIONS (5)
  - ALOPECIA [None]
  - CHAPPED LIPS [None]
  - DRY EYE [None]
  - RHINORRHOEA [None]
  - SKIN EXFOLIATION [None]
